FAERS Safety Report 19382333 (Version 1)
Quarter: 2021Q2

REPORT INFORMATION
  Report Type: Other
  Country: CN (occurrence: CN)
  Receive Date: 20210607
  Receipt Date: 20210607
  Transmission Date: 20210717
  Serious: No
  Sender: FDA-Public Use
  Company Number: CN-NEPHRON PHARMACEUTICALS CORPORATION-2112416

PATIENT
  Age: 50 Year
  Sex: Male

DRUGS (2)
  1. MOXIFLOXACIN. [Concomitant]
     Active Substance: MOXIFLOXACIN
     Route: 040
  2. KETOROLAC [Suspect]
     Active Substance: KETOROLAC TROMETHAMINE
     Indication: PAIN
     Route: 040

REACTIONS (1)
  - Hepatic enzyme increased [Recovered/Resolved]
